FAERS Safety Report 8508931-8 (Version None)
Quarter: 2012Q3

REPORT INFORMATION
  Report Type: 
  Country: None (occurrence: None)
  Receive Date: 20120713
  Receipt Date: 20120704
  Transmission Date: 20120928
  Serious: Yes (Hospitalization, Other)
  Sender: FDA-Public Use
  Company Number: JP-JNJFOC-20120704514

PATIENT

DRUGS (2)
  1. RISPERDAL [Suspect]
     Dosage: ON A REGULAR BASIS
     Route: 048
  2. RISPERDAL [Suspect]
     Indication: PRODUCT USED FOR UNKNOWN INDICATION
     Dosage: AS NEEDED
     Route: 048

REACTIONS (2)
  - HOSPITALISATION [None]
  - GASTROINTESTINAL DISORDER [None]
